FAERS Safety Report 4743525-1 (Version None)
Quarter: 2005Q3

REPORT INFORMATION
  Report Type: 
  Country: None (occurrence: None)
  Receive Date: 20050809
  Receipt Date: 20050728
  Transmission Date: 20060218
  Serious: Yes (Hospitalization, Disabling)
  Sender: FDA-Public Use
  Company Number: 2005107218

PATIENT
  Age: 14 Year
  Sex: Male
  Weight: 33.6 kg

DRUGS (3)
  1. GENOTROPIN [Suspect]
     Indication: GROWTH HORMONE DEFICIENCY
     Dosage: 1.36 MG (1.36 MG, DAILY INTERVAL), SUBCUTANEOUS
     Route: 058
     Dates: start: 19950201
  2. THYROXINE (LEVOTHYROXINE) [Concomitant]
  3. SUSTANON (TESTOSTERONE CAPRINOYLACETATE, TESTOSTERONE ISOCAPROATE, TES [Concomitant]

REACTIONS (2)
  - DIABETES MELLITUS INSULIN-DEPENDENT [None]
  - DIABETIC KETOACIDOSIS [None]
